FAERS Safety Report 9505495 (Version 1)
Quarter: 2013Q1

REPORT INFORMATION
  Report Type: Spontaneous
  Country: US (occurrence: None)
  Receive Date: 20130220
  Receipt Date: 20130220
  Transmission Date: 20140127
  Serious: No
  Sender: FDA-Public Use
  Company Number: 1000040810

PATIENT
  Sex: Female

DRUGS (1)
  1. VIIBRYD [Suspect]
     Dosage: 20 MG (20 MG, 1 IN 1 D)

REACTIONS (4)
  - Insomnia [None]
  - Nervousness [None]
  - Heart rate increased [None]
  - Blood pressure increased [None]
